FAERS Safety Report 26061032 (Version 1)
Quarter: 2025Q4

REPORT INFORMATION
  Report Type: Spontaneous
  Country: EU (occurrence: EU)
  Receive Date: 20251118
  Receipt Date: 20251118
  Transmission Date: 20260117
  Serious: Yes (Other)
  Sender: NOVARTIS
  Company Number: EU-002147023-NVSC2025CZ164951

PATIENT
  Age: 69 Year
  Sex: Female
  Weight: 87 kg

DRUGS (3)
  1. ASCIMINIB [Suspect]
     Active Substance: ASCIMINIB
     Indication: Chronic myeloid leukaemia
     Dosage: 20 MG, QD
     Route: 065
     Dates: start: 202406, end: 202406
  2. ASCIMINIB [Suspect]
     Active Substance: ASCIMINIB
     Dosage: 40 MG, QD
     Route: 065
     Dates: start: 202406, end: 202406
  3. ASCIMINIB [Suspect]
     Active Substance: ASCIMINIB
     Dosage: 20 MG, QD
     Route: 065
     Dates: start: 202406

REACTIONS (4)
  - Electrocardiogram QT prolonged [Unknown]
  - Hepatic function abnormal [Unknown]
  - Pancreatic enzymes abnormal [Unknown]
  - Renal impairment [Unknown]
